FAERS Safety Report 13472586 (Version 4)
Quarter: 2017Q4

REPORT INFORMATION
  Report Type: Report from Study
  Country: US (occurrence: US)
  Receive Date: 20170424
  Receipt Date: 20171016
  Transmission Date: 20180320
  Serious: No
  Sender: FDA-Public Use
  Company Number: PHEH2017US010972

PATIENT
  Age: 56 Year
  Sex: Male

DRUGS (1)
  1. COSENTYX [Suspect]
     Active Substance: SECUKINUMAB
     Indication: PSORIASIS
     Dosage: 300 MG, QW
     Route: 058
     Dates: start: 20170328

REACTIONS (11)
  - Dysphonia [Unknown]
  - Abdominal discomfort [Unknown]
  - Malaise [Unknown]
  - Poor quality sleep [Unknown]
  - Palpitations [Unknown]
  - Rhinorrhoea [Unknown]
  - Lethargy [Unknown]
  - Psoriasis [Recovering/Resolving]
  - Somnolence [Unknown]
  - Nausea [Unknown]
  - Restlessness [Unknown]

NARRATIVE: CASE EVENT DATE: 20170328
